FAERS Safety Report 4800634-6 (Version None)
Quarter: 2005Q3

REPORT INFORMATION
  Report Type: 
  Country: None (occurrence: None)
  Receive Date: 20050929
  Receipt Date: 20050809
  Transmission Date: 20060218
  Serious: No
  Sender: FDA-Public Use
  Company Number: 05P-163-0308032-00

PATIENT
  Age: 47 Year
  Sex: Female
  Weight: 65.7716 kg

DRUGS (9)
  1. HUMIRA [Suspect]
     Indication: RHEUMATOID ARTHRITIS
     Dosage: 40 MG, 1 IN 2 WK, SUBCUTANEOUS
     Route: 058
     Dates: start: 20050625
  2. PREDNISONE TAB [Concomitant]
  3. VOLTAREN [Concomitant]
  4. METOPROLOL [Concomitant]
  5. EFFEXERIL [Concomitant]
  6. HYDROXYCHLOROQUINE PHOSPHATE [Concomitant]
  7. ANTARA [Concomitant]
  8. DARVOCET [Concomitant]
  9. PHENAGLYCODOL [Concomitant]

REACTIONS (1)
  - PAIN [None]
